FAERS Safety Report 14943991 (Version 4)
Quarter: 2018Q3

REPORT INFORMATION
  Report Type: Spontaneous
  Country: US (occurrence: US)
  Receive Date: 20180528
  Receipt Date: 20180706
  Transmission Date: 20181010
  Serious: Yes (Hospitalization, Other)
  Sender: FDA-Public Use
  Company Number: US-GLAXOSMITHKLINE-US2018090615

PATIENT
  Age: 86 Year
  Sex: Male

DRUGS (1)
  1. ADVAIR DISKUS [Suspect]
     Active Substance: FLUTICASONE PROPIONATE\SALMETEROL XINAFOATE
     Indication: CHRONIC OBSTRUCTIVE PULMONARY DISEASE
     Dosage: 1 PUFF(S), PRN

REACTIONS (4)
  - Wrong technique in device usage process [Unknown]
  - Hernia repair [Recovering/Resolving]
  - Intentional underdose [Unknown]
  - Cough [Unknown]

NARRATIVE: CASE EVENT DATE: 20180613
